FAERS Safety Report 13368981 (Version 11)
Quarter: 2017Q3

REPORT INFORMATION
  Report Type: Report from Study
  Country: US (occurrence: US)
  Receive Date: 20170324
  Receipt Date: 20170814
  Transmission Date: 20171127
  Serious: Yes (Hospitalization, Other)
  Sender: FDA-Public Use
  Company Number: US-GILEAD-2017-0263602

PATIENT
  Age: 48 Year
  Sex: Female
  Weight: 72.56 kg

DRUGS (27)
  1. AMBRISENTAN [Suspect]
     Active Substance: AMBRISENTAN
     Indication: SUBSTANCE USE DISORDER
  2. DILAUDID [Concomitant]
     Active Substance: HYDROMORPHONE HYDROCHLORIDE
  3. PRILOSEC [Concomitant]
     Active Substance: OMEPRAZOLE MAGNESIUM
  4. AMBRISENTAN [Suspect]
     Active Substance: AMBRISENTAN
     Indication: PULMONARY ARTERIAL HYPERTENSION
     Dosage: 10 MG, QD
     Route: 048
     Dates: start: 20110208
  5. UPTRAVI [Concomitant]
     Active Substance: SELEXIPAG
  6. XARELTO [Concomitant]
     Active Substance: RIVAROXABAN
  7. OXYGEN. [Concomitant]
     Active Substance: OXYGEN
  8. DEMADEX [Concomitant]
     Active Substance: TORSEMIDE
  9. LANOXIN [Concomitant]
     Active Substance: DIGOXIN
  10. LIDODERM [Concomitant]
     Active Substance: LIDOCAINE
  11. ZANTAC [Concomitant]
     Active Substance: RANITIDINE HYDROCHLORIDE
  12. DIGOXIN. [Concomitant]
     Active Substance: DIGOXIN
  13. COLACE [Concomitant]
     Active Substance: DOCUSATE SODIUM
  14. SYNTHROID [Concomitant]
     Active Substance: LEVOTHYROXINE SODIUM
  15. VITAMIN B12 [Suspect]
     Active Substance: CYANOCOBALAMIN
     Indication: VITAMIN B12 DEFICIENCY
     Dosage: 1 MG, Q1WK
     Route: 065
     Dates: start: 201706
  16. CELEBREX [Concomitant]
     Active Substance: CELECOXIB
  17. EPLERENONE. [Concomitant]
     Active Substance: EPLERENONE
  18. KEPPRA [Concomitant]
     Active Substance: LEVETIRACETAM
  19. SELEXIPAG [Concomitant]
     Active Substance: SELEXIPAG
  20. ZOCOR [Concomitant]
     Active Substance: SIMVASTATIN
  21. DRISDOL [Concomitant]
     Active Substance: ERGOCALCIFEROL
  22. REVATIO [Concomitant]
     Active Substance: SILDENAFIL CITRATE
  23. ASCORBIC ACID. [Concomitant]
     Active Substance: ASCORBIC ACID
  24. FERGON [Concomitant]
     Active Substance: FERROUS GLUCONATE
  25. KLOR-CON [Concomitant]
     Active Substance: POTASSIUM CHLORIDE
  26. NEUPRO [Concomitant]
     Active Substance: ROTIGOTINE
  27. ZOFRAN [Concomitant]
     Active Substance: ONDANSETRON HYDROCHLORIDE

REACTIONS (8)
  - Cardiac failure [Not Recovered/Not Resolved]
  - Renal failure [Not Recovered/Not Resolved]
  - Seizure like phenomena [Unknown]
  - Seizure [Not Recovered/Not Resolved]
  - Bladder disorder [Not Recovered/Not Resolved]
  - Dyspepsia [Recovering/Resolving]
  - Syncope [Not Recovered/Not Resolved]
  - Loss of consciousness [Unknown]

NARRATIVE: CASE EVENT DATE: 201703
